FAERS Safety Report 18868251 (Version 3)
Quarter: 2021Q1

REPORT INFORMATION
  Report Type: Report from Study
  Country: FI (occurrence: FI)
  Receive Date: 20210209
  Receipt Date: 20210305
  Transmission Date: 20210420
  Serious: Yes (Life-Threatening, Hospitalization, Other)
  Sender: FDA-Public Use
  Company Number: NVSC2019FI018078

PATIENT
  Age: 66 Year
  Sex: Male

DRUGS (8)
  1. INC280 [Suspect]
     Active Substance: CAPMATINIB
     Dosage: 200 MG, BID
     Route: 048
     Dates: start: 2019, end: 202101
  2. DEXAMETASON [Concomitant]
     Active Substance: DEXAMETHASONE
     Dosage: 0.5 MG TO 1.5 MG (VARIABLE DOSES)
     Route: 065
  3. INC280 [Suspect]
     Active Substance: CAPMATINIB
     Indication: METASTASES TO LUNG
     Dosage: 400 MG, BID
     Route: 048
     Dates: start: 20190708, end: 2019
  4. DEXAMETASON [Concomitant]
     Active Substance: DEXAMETHASONE
     Indication: LUNG NEOPLASM MALIGNANT
     Dosage: 1.5 MG TO 3 MG, QD
     Route: 065
  5. TINZAPARIN [Concomitant]
     Active Substance: TINZAPARIN
     Indication: PULMONARY EMBOLISM
  6. INC280 [Suspect]
     Active Substance: CAPMATINIB
     Dosage: 200 MG, QD
     Route: 048
     Dates: start: 201911
  7. INC280 [Suspect]
     Active Substance: CAPMATINIB
     Dosage: 100 MG, BID
     Route: 048
     Dates: start: 20191015, end: 201911
  8. TINZAPARIN [Concomitant]
     Active Substance: TINZAPARIN
     Indication: LUNG NEOPLASM MALIGNANT
     Dosage: UNK
     Route: 058

REACTIONS (6)
  - Liver function test increased [Unknown]
  - Swelling [Unknown]
  - Peripheral swelling [Recovering/Resolving]
  - Ascites [Recovering/Resolving]
  - Pleural effusion [Recovering/Resolving]
  - Blood albumin decreased [Unknown]

NARRATIVE: CASE EVENT DATE: 2019
